APPROVED DRUG PRODUCT: TRIHEXYPHENIDYL HYDROCHLORIDE
Active Ingredient: TRIHEXYPHENIDYL HYDROCHLORIDE
Strength: 5MG
Dosage Form/Route: TABLET;ORAL
Application: A040337 | Product #001
Applicant: HIKMA PHARMACEUTICALS LLC
Approved: Feb 16, 2000 | RLD: No | RS: No | Type: DISCN